FAERS Safety Report 4984048-4 (Version None)
Quarter: 2006Q1

REPORT INFORMATION
  Report Type: 
  Country: None (occurrence: None)
  Receive Date: 20060301
  Receipt Date: 20051101
  Transmission Date: 20060701
  Serious: No
  Sender: FDA-Public Use
  Company Number: S05-USA-04819-01

PATIENT
  Age: 83 Year
  Sex: Female

DRUGS (4)
  1. NAMENDA [Suspect]
     Indication: DEMENTIA ALZHEIMER'S TYPE
     Dosage: 5 MG QD PO
     Route: 048
     Dates: start: 20051026
  2. ARICEPT [Concomitant]
  3. HIGH BLOOD PRESSURE MEDICATION (NOS) [Concomitant]
  4. HIGH CHOLESTEROL MEDICATION (NOS) [Concomitant]

REACTIONS (1)
  - RASH [None]
